FAERS Safety Report 7176759-X (Version None)
Quarter: 2010Q4

REPORT INFORMATION
  Report Type: 
  Country: None (occurrence: None)
  Receive Date: 20101220
  Receipt Date: 20101214
  Transmission Date: 20110411
  Serious: Yes (Life-Threatening, Hospitalization, Other)
  Sender: FDA-Public Use
  Company Number: PHHY2010SE84756

PATIENT
  Sex: Female

DRUGS (6)
  1. DIOVAN [Suspect]
     Indication: ESSENTIAL HYPERTENSION
     Dosage: 160/25 MG
  2. OCTOSTIM [Suspect]
     Indication: HAEMORRHAGE
     Dosage: UNK
  3. SIMVASTATIN [Concomitant]
  4. SELOKEN [Concomitant]
  5. PLENDIL [Concomitant]
  6. SUMATRIPTAN SUCCINATE [Concomitant]

REACTIONS (9)
  - ASTHENIA [None]
  - DIPLOPIA [None]
  - HAEMORRHAGE [None]
  - HEAD INJURY [None]
  - HEADACHE [None]
  - HYPONATRAEMIA [None]
  - MALAISE [None]
  - MUSCLE SPASMS [None]
  - PROLAPSE REPAIR [None]
